FAERS Safety Report 18150103 (Version 1)
Quarter: 2020Q3

REPORT INFORMATION
  Report Type: Spontaneous
  Country: TR (occurrence: TR)
  Receive Date: 20200814
  Receipt Date: 20200814
  Transmission Date: 20201103
  Serious: Yes (Other)
  Sender: FDA-Public Use
  Company Number: TR-SGP-000005

PATIENT
  Age: 16 Year

DRUGS (2)
  1. IMMUNOGLOBULINS NOS [Suspect]
     Active Substance: IMMUNE GLOBULIN NOS
     Indication: ENCEPHALITIS AUTOIMMUNE
     Route: 042
  2. METHYLPREDNISOLONE. [Suspect]
     Active Substance: METHYLPREDNISOLONE
     Indication: ENCEPHALITIS AUTOIMMUNE
     Route: 042

REACTIONS (3)
  - Respiratory distress [Unknown]
  - Product use in unapproved indication [Unknown]
  - Pulmonary embolism [Unknown]
